FAERS Safety Report 19090045 (Version 2)
Quarter: 2021Q4

REPORT INFORMATION
  Report Type: Spontaneous
  Country: US (occurrence: US)
  Receive Date: 20210404
  Receipt Date: 20211011
  Transmission Date: 20220303
  Serious: Yes (Life-Threatening, Hospitalization)
  Sender: FDA-Public Use
  Company Number: US-TEVA-2021-US-1895793

PATIENT
  Age: 14 Year
  Sex: Female

DRUGS (3)
  1. PROPRANOLOL [Interacting]
     Active Substance: PROPRANOLOL HYDROCHLORIDE
     Indication: Product used for unknown indication
     Route: 048
  2. FLUOXETINE [Interacting]
     Active Substance: FLUOXETINE HYDROCHLORIDE
     Indication: Product used for unknown indication
     Route: 048
  3. QUETIAPINE [Interacting]
     Active Substance: QUETIAPINE
     Indication: Product used for unknown indication
     Route: 048

REACTIONS (6)
  - Depressed level of consciousness [Recovering/Resolving]
  - Hypotension [Recovering/Resolving]
  - Bezoar [Unknown]
  - Drug interaction [Unknown]
  - Overdose [Unknown]
  - Toxicity to various agents [Unknown]
